FAERS Safety Report 7549512-2 (Version None)
Quarter: 2011Q2

REPORT INFORMATION
  Report Type: 
  Country: None (occurrence: None)
  Receive Date: 20110615
  Receipt Date: 20041101
  Transmission Date: 20111010
  Serious: Yes (Hospitalization)
  Sender: FDA-Public Use
  Company Number: PHFR2004GB03849

PATIENT
  Sex: Female

DRUGS (2)
  1. CLOZAPINE [Suspect]
     Indication: SCHIZOPHRENIA
     Route: 048
     Dates: start: 19960322
  2. CLOZAPINE [Suspect]
     Dosage: 650 MG, QD
     Route: 048
     Dates: start: 20041031

REACTIONS (2)
  - VOMITING [None]
  - INFECTION [None]
